FAERS Safety Report 5301483-5 (Version None)
Quarter: 2007Q2

REPORT INFORMATION
  Report Type: 
  Country: None (occurrence: None)
  Receive Date: 20070412
  Receipt Date: 20070328
  Transmission Date: 20071010
  Serious: Yes (Other)
  Sender: FDA-Public Use
  Company Number: 07-000692

PATIENT
  Age: 26 Year
  Sex: Female

DRUGS (2)
  1. OVCON-35 [Suspect]
     Indication: CONTRACEPTION
     Dosage: QD, ORAL
     Route: 048
     Dates: start: 20040101
  2. SYNTHROID [Concomitant]

REACTIONS (1)
  - BENIGN NEOPLASM [None]
